FAERS Safety Report 10076902 (Version 1)
Quarter: 2014Q2

REPORT INFORMATION
  Report Type: Spontaneous
  Country: US (occurrence: US)
  Receive Date: 20140414
  Receipt Date: 20140414
  Transmission Date: 20141212
  Serious: Yes (Hospitalization)
  Sender: FDA-Public Use
  Company Number: US-GLAXOSMITHKLINE-A1069028A

PATIENT
  Age: 65 Year
  Sex: Female

DRUGS (4)
  1. ALLI [Suspect]
     Indication: WEIGHT LOSS DIET
     Route: 048
  2. SYNTHROID [Concomitant]
  3. TOPROL [Concomitant]
  4. ATORVASTATIN [Concomitant]

REACTIONS (6)
  - Abdominal pain [Recovered/Resolved]
  - Diarrhoea [Recovered/Resolved]
  - Defaecation urgency [Recovered/Resolved]
  - Diverticulitis [Not Recovered/Not Resolved]
  - Body temperature increased [Recovered/Resolved]
  - Gastrointestinal disorder [Recovered/Resolved]
